FAERS Safety Report 5189821-8 (Version None)
Quarter: 2006Q4

REPORT INFORMATION
  Report Type: 
  Country: None (occurrence: None)
  Receive Date: 20061215
  Receipt Date: 20061205
  Transmission Date: 20070319
  Serious: Yes (Hospitalization, Disabling)
  Sender: FDA-Public Use
  Company Number: 2006129918

PATIENT
  Age: 9 Year
  Sex: Female
  Weight: 33 kg

DRUGS (10)
  1. SULPERAZON (SULBACTAM, CEFOPERAZONE) [Suspect]
     Indication: PNEUMONIA
     Dosage: 2 GRAM (1 GRAM, 2 IN 1 D), INTRAVENOUS
     Route: 042
     Dates: start: 20061008, end: 20061014
  2. SULPERAZON (SULBACTAM, CEFOPERAZONE) [Suspect]
     Indication: PYREXIA
     Dosage: 2 GRAM (1 GRAM, 2 IN 1 D), INTRAVENOUS
     Route: 042
     Dates: start: 20061008, end: 20061014
  3. UNASYN [Suspect]
     Indication: PNEUMONIA
     Dosage: 3 GRAM (1.5 GRAM, 2 IN 1 D), INTRAVENOUS
     Route: 042
     Dates: start: 20061006, end: 20061008
  4. UNASYN [Suspect]
     Indication: PYREXIA
     Dosage: 3 GRAM (1.5 GRAM, 2 IN 1 D), INTRAVENOUS
     Route: 042
     Dates: start: 20061006, end: 20061008
  5. CARBENIN (BETAMIPRON, PANIPENEM) [Suspect]
     Indication: PNEUMONIA
     Dosage: 1 GRAM (0.5 GRAM, 2 IN 1 D), INTRAVENOUS
     Route: 042
     Dates: start: 20061015, end: 20061022
  6. CARBENIN (BETAMIPRON, PANIPENEM) [Suspect]
     Indication: PYREXIA
     Dosage: 1 GRAM (0.5 GRAM, 2 IN 1 D), INTRAVENOUS
     Route: 042
     Dates: start: 20061015, end: 20061022
  7. FAMOTIDINE [Suspect]
     Indication: PROPHYLAXIS
     Dosage: 20 MG (20 MG, 1 IN 1 D), INTRAVENOUS
     Route: 042
     Dates: start: 20061007, end: 20061015
  8. ROCEPHIN [Concomitant]
  9. CEFAZOLIN SODIUM [Concomitant]
  10. PANTOL (DEXPANTHENOL) [Concomitant]

REACTIONS (8)
  - ACUTE RESPIRATORY DISTRESS SYNDROME [None]
  - CHEST X-RAY ABNORMAL [None]
  - CONSTIPATION [None]
  - DRUG INEFFECTIVE [None]
  - HYPERSENSITIVITY [None]
  - PNEUMONIA [None]
  - PULMONARY OEDEMA [None]
  - STAPHYLOCOCCAL INFECTION [None]
